FAERS Safety Report 6520512-4 (Version None)
Quarter: 2009Q4

REPORT INFORMATION
  Report Type: 
  Country: None (occurrence: None)
  Receive Date: 20091229
  Receipt Date: 20091218
  Transmission Date: 20100525
  Serious: Yes (Life-Threatening, Hospitalization)
  Sender: FDA-Public Use
  Company Number: B0617370A

PATIENT
  Age: 75 Year
  Sex: Male
  Weight: 75 kg

DRUGS (4)
  1. AUGMENTIN [Suspect]
     Indication: PROPHYLAXIS
     Route: 040
     Dates: start: 20091130, end: 20091130
  2. AMLODIPINE [Concomitant]
     Indication: HYPERTENSION
     Route: 048
  3. ASPIRIN [Concomitant]
     Route: 048
  4. ANALGESICS [Concomitant]

REACTIONS (6)
  - AIRWAY PEAK PRESSURE INCREASED [None]
  - FACE OEDEMA [None]
  - GENERALISED ERYTHEMA [None]
  - HYPOTENSION [None]
  - LIP SWELLING [None]
  - SWOLLEN TONGUE [None]
